FAERS Safety Report 18971288 (Version 2)
Quarter: 2023Q2

REPORT INFORMATION
  Report Type: Other
  Country: CA (occurrence: CA)
  Receive Date: 20210304
  Receipt Date: 20230516
  Transmission Date: 20230722
  Serious: Yes (Hospitalization)
  Sender: FDA-Public Use
  Company Number: CA-CELLTRION INC.-2021CA002610

PATIENT

DRUGS (19)
  1. TRASTUZUMAB [Suspect]
     Active Substance: TRASTUZUMAB
     Indication: HER2 positive breast cancer
     Dosage: 342 MG 1 EVERY 1 MONTHS
     Route: 042
  2. TRASTUZUMAB [Suspect]
     Active Substance: TRASTUZUMAB
     Indication: Breast cancer metastatic
     Dosage: UNK
     Route: 041
  3. TRASTUZUMAB [Suspect]
     Active Substance: TRASTUZUMAB
     Dosage: 342 MG, CYCLICAL
     Route: 042
  4. TRASTUZUMAB [Suspect]
     Active Substance: TRASTUZUMAB
     Dosage: 456 MG, CYCLICAL
     Route: 042
  5. TRASTUZUMAB [Suspect]
     Active Substance: TRASTUZUMAB
     Dosage: UNK
     Route: 042
  6. TRASTUZUMAB [Suspect]
     Active Substance: TRASTUZUMAB
     Dosage: 342 MG, CYCLICAL
     Route: 042
  7. TRASTUZUMAB [Suspect]
     Active Substance: TRASTUZUMAB
     Dosage: 360 MG, CYCLICAL
     Route: 042
  8. TRASTUZUMAB [Suspect]
     Active Substance: TRASTUZUMAB
     Dosage: 396 MG, CYCLICAL
     Route: 042
  9. AMLODIPINE [Concomitant]
     Active Substance: AMLODIPINE BESYLATE
     Dosage: UNK
  10. AMLODIPINE [Concomitant]
     Active Substance: AMLODIPINE BESYLATE
     Dosage: UNK
     Route: 065
  11. CAPECITABINE [Concomitant]
     Active Substance: CAPECITABINE
     Dosage: 500 MG, 2 EVERY 1 DAYS
     Route: 048
  12. GABAPENTIN [Concomitant]
     Active Substance: GABAPENTIN
     Dosage: 200 MG, 3 EVERY 1 DAYS
     Route: 065
  13. IBRANCE [Concomitant]
     Active Substance: PALBOCICLIB
     Route: 065
  14. LETROZOLE [Concomitant]
     Active Substance: LETROZOLE
  15. LORAZEPAM [Concomitant]
     Active Substance: LORAZEPAM
     Route: 065
  16. NINTEDANIB [Concomitant]
     Active Substance: NINTEDANIB
  17. RAMIPRIL [Concomitant]
     Active Substance: RAMIPRIL
  18. XGEVA SINGLE-USE VIAL FOR S.C. USE ONLY. PRESERVATIVE-FREE. [Concomitant]
     Route: 058
  19. ZOLEDRONIC ACID [Concomitant]
     Active Substance: ZOLEDRONIC ACID

REACTIONS (7)
  - Blood pressure systolic increased [Unknown]
  - Gastroenteritis [Unknown]
  - Blood pressure increased [Unknown]
  - Heart rate decreased [Unknown]
  - Hypertension [Unknown]
  - Intentional product use issue [Unknown]
  - Underdose [Unknown]
